FAERS Safety Report 9246902 (Version 2)
Quarter: 2013Q4

REPORT INFORMATION
  Report Type: Spontaneous
  Country: JP (occurrence: JP)
  Receive Date: 20130422
  Receipt Date: 20131101
  Transmission Date: 20140711
  Serious: Yes (Other)
  Sender: FDA-Public Use
  Company Number: JP-VIIV HEALTHCARE LIMITED-B0884952A

PATIENT
  Age: 62 Year
  Sex: Male
  Weight: 61 kg

DRUGS (3)
  1. EPIVIR [Suspect]
     Route: 048
  2. ZERIT [Suspect]
     Route: 048
  3. VIRACEPT [Concomitant]
     Route: 048

REACTIONS (9)
  - Weight decreased [Unknown]
  - Diabetes mellitus [Unknown]
  - Diabetes mellitus inadequate control [Unknown]
  - Facial wasting [Unknown]
  - Lipoatrophy [Unknown]
  - Abdominal distension [Unknown]
  - Hyperinsulinaemia [Unknown]
  - Hypertriglyceridaemia [Unknown]
  - Congenital generalised lipodystrophy [Unknown]
